FAERS Safety Report 5063881-7 (Version None)
Quarter: 2006Q3

REPORT INFORMATION
  Report Type: 
  Country: None (occurrence: None)
  Receive Date: 20060727
  Receipt Date: 20030409
  Transmission Date: 20061208
  Serious: Yes (Death, Hospitalization)
  Sender: FDA-Public Use
  Company Number: DE-ABBOTT-03P-062-0216089-02

PATIENT
  Sex: Male
  Weight: 56 kg

DRUGS (8)
  1. HUMIRA [Suspect]
     Indication: RHEUMATOID ARTHRITIS
     Route: 058
     Dates: start: 20000703, end: 20030204
  2. PREDNISOLONE [Concomitant]
     Indication: RHEUMATOID ARTHRITIS
     Route: 048
     Dates: start: 20000423, end: 20030606
  3. ASPIRIN [Concomitant]
     Indication: CORONARY ARTERY DISEASE
     Route: 048
     Dates: start: 20011009, end: 20030606
  4. DICLOFENAC [Concomitant]
     Indication: RHEUMATOID ARTHRITIS
     Route: 048
     Dates: start: 20011011, end: 20030606
  5. CALCIUM GLUCONATE [Concomitant]
     Indication: OSTEOPOROSIS PROPHYLAXIS
     Route: 048
     Dates: start: 20011121, end: 20030606
  6. COLECALCIFEROL [Concomitant]
     Indication: OSTEOPOROSIS PROPHYLAXIS
     Route: 048
     Dates: start: 20011121, end: 20030606
  7. FORMOTEROL FUMARATE [Concomitant]
     Indication: LUNG DISORDER
     Route: 055
     Dates: start: 20030201, end: 20030606
  8. BUDESONIDE [Concomitant]
     Indication: LUNG DISORDER
     Route: 055
     Dates: start: 20030201, end: 20030606

REACTIONS (3)
  - BRONCHIAL FISTULA [None]
  - EMPYEMA [None]
  - LUNG ABSCESS [None]
